FAERS Safety Report 5000131-1 (Version None)
Quarter: 2006Q1

REPORT INFORMATION
  Report Type: 
  Country: None (occurrence: None)
  Receive Date: 20060315
  Receipt Date: 20051121
  Transmission Date: 20060701
  Serious: Yes (Other)
  Sender: FDA-Public Use
  Company Number: 414865

PATIENT
  Sex: Female

DRUGS (1)
  1. BONIVA [Suspect]
     Indication: DRUG USE FOR UNKNOWN INDICATION
     Dates: start: 20050615

REACTIONS (7)
  - CHEST PAIN [None]
  - CHILLS [None]
  - GASTRIC DISORDER [None]
  - INFLUENZA LIKE ILLNESS [None]
  - MUSCULOSKELETAL CHEST PAIN [None]
  - NAUSEA [None]
  - PAIN IN EXTREMITY [None]
